FAERS Safety Report 8924315 (Version 1)
Quarter: 2012Q4

REPORT INFORMATION
  Report Type: 
  Country: FR (occurrence: FR)
  Receive Date: 20121126
  Receipt Date: 20121126
  Transmission Date: 20130627
  Serious: Yes (Other)
  Sender: FDA-Public Use
  Company Number: FR-GLAXOSMITHKLINE-B0845682A

PATIENT
  Age: 78 Year
  Sex: Female

DRUGS (6)
  1. PAROXETINE [Suspect]
     Indication: DEPRESSION
     Dosage: 20MG Per day
     Route: 048
     Dates: start: 20121027, end: 20121028
  2. RANITIDINE [Suspect]
     Indication: GASTRODUODENAL ULCER
     Dosage: 300MG Per day
     Route: 048
     Dates: start: 20121027, end: 20121028
  3. METFORMINE [Suspect]
     Indication: TYPE 2 DIABETES MELLITUS
     Dosage: 500MG Twice per day
     Route: 048
     Dates: start: 20121027, end: 20121028
  4. DEROXAT [Concomitant]
     Indication: DEPRESSION
     Dosage: 20MG Per day
     Route: 048
     Dates: end: 20121026
  5. AZANTAC [Concomitant]
     Indication: GASTRODUODENAL ULCER
     Dosage: 300MG Per day
     Route: 048
     Dates: end: 20121026
  6. GLUCOPHAGE [Concomitant]
     Indication: TYPE 2 DIABETES MELLITUS
     Dosage: 500MG Twice per day
     Route: 048
     Dates: end: 20121026

REACTIONS (3)
  - Vomiting [Recovered/Resolved]
  - Diarrhoea [Recovered/Resolved]
  - Product substitution issue [Unknown]
